FAERS Safety Report 9215166 (Version 2)
Quarter: 2013Q2

REPORT INFORMATION
  Report Type: Spontaneous
  Country: US (occurrence: US)
  Receive Date: 20130405
  Receipt Date: 20130531
  Transmission Date: 20140414
  Serious: Yes (Other)
  Sender: FDA-Public Use
  Company Number: US-TEVA-395960USA

PATIENT
  Sex: 0

DRUGS (1)
  1. BENDAMUSTINE [Suspect]
     Route: 042

REACTIONS (2)
  - Deafness [Unknown]
  - Visual impairment [Unknown]
